FAERS Safety Report 19318078 (Version 3)
Quarter: 2022Q2

REPORT INFORMATION
  Report Type: Spontaneous
  Country: US (occurrence: US)
  Receive Date: 20210527
  Receipt Date: 20220503
  Transmission Date: 20220721
  Serious: Yes (Hospitalization, Other)
  Sender: FDA-Public Use
  Company Number: US-TEVA-2021-US-1915056

PATIENT
  Age: 78 Year
  Sex: Male

DRUGS (2)
  1. AMIODARONE [Interacting]
     Active Substance: AMIODARONE
     Indication: Atrial fibrillation
     Route: 065
  2. TRAZODONE [Interacting]
     Active Substance: TRAZODONE HYDROCHLORIDE
     Indication: Insomnia
     Route: 065

REACTIONS (3)
  - Parkinsonism [Recovered/Resolved]
  - Drug interaction [Unknown]
  - Off label use [Unknown]
